FAERS Safety Report 11129662 (Version 10)
Quarter: 2016Q2

REPORT INFORMATION
  Report Type: Report from Study
  Country: SG (occurrence: SG)
  Receive Date: 20150521
  Receipt Date: 20160627
  Transmission Date: 20160815
  Serious: Yes (Hospitalization)
  Sender: FDA-Public Use
  Company Number: SG-ASTELLAS-2015US015147

PATIENT
  Age: 75 Year
  Sex: Male

DRUGS (4)
  1. SOLIFENACIN-MIRABEGRON [Suspect]
     Active Substance: MIRABEGRON\SOLIFENACIN
     Dosage: 3 DF (SOLIFENACIN 5 MG + MIRABEGRON 25 MG), ONCE DAILY
     Route: 048
     Dates: end: 20150526
  2. ATENOLOL. [Suspect]
     Active Substance: ATENOLOL
     Indication: SUPRAVENTRICULAR TACHYCARDIA
     Route: 048
     Dates: start: 20100531, end: 20150508
  3. AMIODARONE [Concomitant]
     Active Substance: AMIODARONE
     Indication: SUPRAVENTRICULAR TACHYCARDIA
     Dosage: 200 MG, ONCE DAILY (EVERY MORNING)
     Route: 048
     Dates: start: 20150505
  4. SOLIFENACIN-MIRABEGRON [Suspect]
     Active Substance: MIRABEGRON\SOLIFENACIN
     Indication: HYPERTONIC BLADDER
     Dosage: 3 DF (SOLIFENACIN 5 MG + MIRABEGRON 25 MG), ONCE DAILY
     Route: 048
     Dates: start: 20150211, end: 20150506

REACTIONS (4)
  - Diarrhoea [Recovered/Resolved]
  - Cardiac failure [Recovered/Resolved]
  - Constipation [Recovered/Resolved]
  - Bradycardia [Recovered/Resolved]

NARRATIVE: CASE EVENT DATE: 20150503
